FAERS Safety Report 5826553-4 (Version None)
Quarter: 2008Q3

REPORT INFORMATION
  Report Type: 
  Country: None (occurrence: None)
  Receive Date: 20080729
  Receipt Date: 20080723
  Transmission Date: 20090109
  Serious: Yes (Hospitalization, Other)
  Sender: FDA-Public Use
  Company Number: FR-ELI_LILLY_AND_COMPANY-FR200807004558

PATIENT
  Age: 50 Year
  Sex: Female
  Weight: 80 kg

DRUGS (3)
  1. HUMALOG [Suspect]
  2. LANTUS [Concomitant]
     Dosage: 76 UL, AT NIGHT
     Route: 058
  3. GLUCOPHAGE [Concomitant]
     Dosage: 3 TABLETS, DAILY (1/D)
     Route: 048

REACTIONS (2)
  - HYPOGLYCAEMIA [None]
  - WRONG DRUG ADMINISTERED [None]
